FAERS Safety Report 25236667 (Version 3)
Quarter: 2025Q2

REPORT INFORMATION
  Report Type: Report from Study
  Country: US (occurrence: US)
  Receive Date: 20250424
  Receipt Date: 20250627
  Transmission Date: 20250716
  Serious: Yes (Hospitalization)
  Sender: BAYER HEALTHCARE PHARMACEUTICALS INC.
  Company Number: US-BAYER-2025A051120

PATIENT
  Age: 63 Year
  Sex: Male

DRUGS (1)
  1. STIVARGA [Suspect]
     Active Substance: REGORAFENIB MONOHYDRATE
     Indication: Colorectal cancer metastatic
     Dosage: 120 MG, QD, ON DAYS 1 THROUGH 21 OF 28 DAY CYCLE
     Route: 048

REACTIONS (12)
  - Illness [Recovering/Resolving]
  - Pyrexia [Recovering/Resolving]
  - COVID-19 [None]
  - Pneumonia [None]
  - Herpes zoster [None]
  - Product use issue [None]
  - Rash [None]
  - Skin fissures [None]
  - Skin exfoliation [None]
  - Fatigue [None]
  - Rash [Not Recovered/Not Resolved]
  - Pruritus [Not Recovered/Not Resolved]
